FAERS Safety Report 6048085-3 (Version None)
Quarter: 2009Q1

REPORT INFORMATION
  Report Type: 
  Country: None (occurrence: None)
  Receive Date: 20090123
  Receipt Date: 20090119
  Transmission Date: 20090719
  Serious: Yes (Death, Hospitalization, Other)
  Sender: FDA-Public Use
  Company Number: PHNU2006DE03159

PATIENT
  Sex: Female

DRUGS (14)
  1. ZOMETA [Suspect]
     Indication: PLASMACYTOMA
     Dosage: 4 MG, QMO
     Route: 042
     Dates: start: 20020801, end: 20050901
  2. IDARUBICIN HCL [Concomitant]
     Indication: PLASMACYTOMA
     Dosage: 15 MG, QD
     Dates: start: 20040901, end: 20040904
  3. IDARUBICIN HCL [Concomitant]
     Dosage: 10 MG, UNK
  4. DEXAMETHASONE [Concomitant]
     Indication: PLASMACYTOMA
     Dosage: 40 MG, QD
     Dates: start: 20040901, end: 20040904
  5. DEXAMETHASONE [Concomitant]
     Dosage: 40 MG, QD
     Dates: start: 20040909, end: 20040920
  6. PANTOZOL [Concomitant]
  7. COTRIM [Concomitant]
  8. TAZOBACTAM [Concomitant]
     Indication: PYREXIA
  9. MELPHALAN [Concomitant]
     Dosage: 186 MG, UNK
     Route: 042
     Dates: start: 20050412, end: 20050413
  10. VANCOMYCIN [Concomitant]
     Indication: MUCOSAL INFLAMMATION
  11. ITRACONAZOLE [Concomitant]
     Indication: MUCOSAL INFLAMMATION
  12. MEROPENEM [Concomitant]
     Indication: ESCHERICHIA BACTERAEMIA
  13. NEUPOGEN [Concomitant]
     Dosage: 48 MILLION UNITS
     Dates: start: 20050208
  14. EPIRUBICIN [Concomitant]
     Indication: PLASMACYTOMA
     Dosage: 75 MG/M2, UNK
     Dates: start: 20050203, end: 20050203

REACTIONS (48)
  - ACTINOMYCOSIS [None]
  - AGEUSIA [None]
  - APHERESIS [None]
  - ASPIRATION BONE MARROW [None]
  - BIOPSY [None]
  - BONE DISORDER [None]
  - CANDIDIASIS [None]
  - CATHETERISATION VENOUS [None]
  - COMPUTERISED TOMOGRAM ABNORMAL [None]
  - CONDITION AGGRAVATED [None]
  - DEATH [None]
  - DENTAL OPERATION [None]
  - DYSPHONIA [None]
  - ESCHERICHIA BACTERAEMIA [None]
  - FISTULA [None]
  - HISTOLOGY ABNORMAL [None]
  - HYPERBARIC OXYGEN THERAPY [None]
  - HYPERPLASIA [None]
  - IMPAIRED HEALING [None]
  - INFECTION [None]
  - INFLAMMATION [None]
  - JAW DISORDER [None]
  - LOOSE TOOTH [None]
  - LYMPHADENOPATHY [None]
  - MALIGNANT NEOPLASM PROGRESSION [None]
  - MOUTH ULCERATION [None]
  - MUCOSAL INFLAMMATION [None]
  - NUCLEAR MAGNETIC RESONANCE IMAGING ABNORMAL [None]
  - OEDEMA MOUTH [None]
  - ORAL MUCOSA ATROPHY [None]
  - OSTEOLYSIS [None]
  - OSTEONECROSIS [None]
  - OSTEOSCLEROSIS [None]
  - PAIN IN JAW [None]
  - PANCYTOPENIA [None]
  - PERIODONTITIS [None]
  - PHARYNGITIS [None]
  - PRIMARY SEQUESTRUM [None]
  - PYREXIA [None]
  - SINUSITIS [None]
  - STOMATITIS [None]
  - SYNCOPE [None]
  - TOOTH EXTRACTION [None]
  - TOOTH RESORPTION [None]
  - TRANSPLANT [None]
  - URINARY TRACT INFECTION [None]
  - VARICOSE VEIN [None]
  - X-RAY ABNORMAL [None]
